FAERS Safety Report 9639812 (Version 1)
Quarter: 2013Q4

REPORT INFORMATION
  Report Type: Spontaneous
  Country: IT (occurrence: IT)
  Receive Date: 20131023
  Receipt Date: 20131023
  Transmission Date: 20140711
  Serious: Yes (Hospitalization)
  Sender: FDA-Public Use
  Company Number: IT-ASTRAZENECA-2013SE76070

PATIENT
  Age: 29221 Day
  Sex: Female

DRUGS (4)
  1. SEROQUEL [Suspect]
     Route: 048
     Dates: start: 20120821, end: 20130820
  2. TRITTICO [Suspect]
     Dosage: 25MG/ML
     Route: 048
     Dates: start: 20120821, end: 20130820
  3. LANSOX [Concomitant]
  4. TRIATEC [Concomitant]

REACTIONS (1)
  - Sopor [Not Recovered/Not Resolved]
